FAERS Safety Report 17021112 (Version 1)
Quarter: 2019Q4

REPORT INFORMATION
  Report Type: Spontaneous
  Country: US (occurrence: US)
  Receive Date: 20191112
  Receipt Date: 20191112
  Transmission Date: 20200122
  Serious: Yes (Hospitalization)
  Sender: FDA-Public Use
  Company Number: US-TEVA-2019-US-1135182

PATIENT
  Age: 75 Year
  Sex: Male

DRUGS (2)
  1. TRIAMCINOLONE [Suspect]
     Active Substance: TRIAMCINOLONE
     Indication: TRIGGER FINGER
     Route: 065
  2. LIDOCAINE. [Concomitant]
     Active Substance: LIDOCAINE
     Indication: TRIGGER FINGER
     Route: 065

REACTIONS (6)
  - Hypotension [Recovered/Resolved]
  - Anaphylactic reaction [Recovered/Resolved]
  - Rash [Recovered/Resolved]
  - Syncope [Recovered/Resolved]
  - Tryptase increased [Recovered/Resolved]
  - Dyspnoea [Recovered/Resolved]
